FAERS Safety Report 13377104 (Version 1)
Quarter: 2017Q1

REPORT INFORMATION
  Report Type: Spontaneous
  Country: US (occurrence: US)
  Receive Date: 20170328
  Receipt Date: 20170328
  Transmission Date: 20170429
  Serious: Yes (Hospitalization)
  Sender: FDA-Public Use
  Company Number: None

PATIENT
  Age: 39 Year
  Sex: Female
  Weight: 67.6 kg

DRUGS (1)
  1. APIXABAN BRISTOL-MYERS SQUIB/PFIZER [Suspect]
     Active Substance: APIXABAN
     Indication: EMBOLISM VENOUS
     Dosage: 10MG BID X 7 D THEN 5 MG BID TWICE DAILY ORAL
     Route: 048
     Dates: start: 20170301

REACTIONS (1)
  - Lung adenocarcinoma [None]

NARRATIVE: CASE EVENT DATE: 20170323
